FAERS Safety Report 8149532-3 (Version None)
Quarter: 2012Q1

REPORT INFORMATION
  Report Type: 
  Country: None (occurrence: None)
  Receive Date: 20120218
  Receipt Date: 20111026
  Transmission Date: 20120608
  Serious: No
  Sender: FDA-Public Use
  Company Number: US-ALLERGAN-1114126US

PATIENT
  Age: 50 Year
  Sex: Female

DRUGS (3)
  1. BOTOX COSMETIC [Suspect]
     Indication: SKIN WRINKLING
     Dosage: 13 UNITS, SINGLE
     Route: 030
     Dates: start: 20110818, end: 20110818
  2. BOTOX COSMETIC [Suspect]
     Dosage: 24 UNITS, SINGLE
     Route: 030
     Dates: start: 20110908, end: 20110908
  3. BOTOX COSMETIC [Suspect]
     Dosage: 16 UNITS SINGLE
     Route: 030
     Dates: start: 20110929, end: 20110929

REACTIONS (2)
  - THERAPEUTIC RESPONSE DECREASED [None]
  - DRUG INEFFECTIVE [None]
